FAERS Safety Report 22267211 (Version 2)
Quarter: 2023Q2

REPORT INFORMATION
  Report Type: Spontaneous
  Country: JP (occurrence: JP)
  Receive Date: 20230428
  Receipt Date: 20230608
  Transmission Date: 20230722
  Serious: Yes (Other)
  Sender: FDA-Public Use
  Company Number: JP-AMGEN-JPNSP2020183669

PATIENT
  Age: 26 Year
  Sex: Female

DRUGS (4)
  1. OTEZLA [Suspect]
     Active Substance: APREMILAST
     Indication: Psoriatic arthropathy
     Dosage: 30 MILLIGRAM, DAILY
     Route: 048
  2. IMIQUIMOD [Suspect]
     Active Substance: IMIQUIMOD
     Indication: Anogenital warts
     Dosage: ONCE DAILY, 3 TIMES/WEEK, FOR 4 WEEKS
     Route: 061
  3. CALCIPOTRIENE [Concomitant]
     Active Substance: CALCIPOTRIENE
  4. BETAMETHASONE DIPROPIONATE [Concomitant]
     Active Substance: BETAMETHASONE DIPROPIONATE

REACTIONS (4)
  - Psoriatic arthropathy [Unknown]
  - Anogenital warts [Unknown]
  - Maternal exposure during pregnancy [Unknown]
  - Diarrhoea [Unknown]
